FAERS Safety Report 10348709 (Version 3)
Quarter: 2024Q3

REPORT INFORMATION
  Report Type: Report from Study
  Country: BR (occurrence: BR)
  Receive Date: 20140729
  Receipt Date: 20240724
  Transmission Date: 20241017
  Serious: Yes (Other)
  Sender: NOVARTIS
  Company Number: PHHY2014BR088769

PATIENT
  Sex: Female
  Weight: 88 kg

DRUGS (7)
  1. TEGRETOL XR [Suspect]
     Active Substance: CARBAMAZEPINE
     Indication: Epilepsy
     Dosage: 1 DF, QD (ONE TABLET OF 400 MG, DAILY)
     Route: 048
     Dates: start: 1983
  2. TEGRETOL XR [Suspect]
     Active Substance: CARBAMAZEPINE
     Indication: Syncope
  3. TEGRETOL XR [Suspect]
     Active Substance: CARBAMAZEPINE
     Indication: Intervertebral disc protrusion
  4. TEGRETOL [Suspect]
     Active Substance: CARBAMAZEPINE
     Indication: Seizure
     Dosage: 1 DF, QD (DAILY)
     Route: 048
     Dates: start: 1980
  5. TEGRETOL XR [Suspect]
     Active Substance: CARBAMAZEPINE
     Indication: Seizure
     Dosage: 400 MG
     Route: 065
  6. TEGRETOL XR [Suspect]
     Active Substance: CARBAMAZEPINE
     Dosage: 200 MG
     Route: 065
  7. CARBAMAZEPINE [Suspect]
     Active Substance: CARBAMAZEPINE
     Indication: Intervertebral disc protrusion
     Dosage: UNK
     Route: 065

REACTIONS (24)
  - Multiple sclerosis [Unknown]
  - Visual impairment [Not Recovered/Not Resolved]
  - Sciatic nerve neuropathy [Not Recovered/Not Resolved]
  - Pain in extremity [Unknown]
  - Quadriplegia [Recovered/Resolved]
  - Quadriplegia [Unknown]
  - Hernia [Not Recovered/Not Resolved]
  - Emphysema [Recovered/Resolved]
  - Pain [Not Recovered/Not Resolved]
  - Hepatic steatosis [Not Recovered/Not Resolved]
  - Glaucoma [Not Recovered/Not Resolved]
  - Vision blurred [Not Recovered/Not Resolved]
  - Syncope [Unknown]
  - Thrombophlebitis [Recovered/Resolved]
  - Immunodeficiency [Not Recovered/Not Resolved]
  - Haemorrhage [Unknown]
  - Gastritis [Unknown]
  - General physical health deterioration [Unknown]
  - Menstrual disorder [Unknown]
  - Wrong technique in product usage process [Unknown]
  - Memory impairment [Unknown]
  - Nausea [Recovered/Resolved]
  - Abdominal discomfort [Unknown]
  - Product availability issue [Unknown]

NARRATIVE: CASE EVENT DATE: 19880101
